FAERS Safety Report 21043449 (Version 1)
Quarter: 2022Q3

REPORT INFORMATION
  Report Type: Spontaneous
  Country: US (occurrence: US)
  Receive Date: 20220705
  Receipt Date: 20220705
  Transmission Date: 20221027
  Serious: No
  Sender: FDA-Public Use
  Company Number: US-NOVARTISTESTPH-NVSC2022US152070

PATIENT
  Sex: Male

DRUGS (3)
  1. AFINITOR [Suspect]
     Active Substance: EVEROLIMUS
     Indication: Product used for unknown indication
     Dosage: UNK
     Route: 065
  2. LENVIMA [Suspect]
     Active Substance: LENVATINIB
     Indication: Renal cell carcinoma
     Dosage: 18 MG, QD
     Route: 065
     Dates: start: 20220217, end: 202203
  3. LENVIMA [Suspect]
     Active Substance: LENVATINIB
     Dosage: 14 MG
     Route: 065
     Dates: start: 20220516

REACTIONS (3)
  - White blood cell count decreased [Unknown]
  - Somnolence [Unknown]
  - Fatigue [Recovering/Resolving]
